FAERS Safety Report 5095451-9 (Version None)
Quarter: 2006Q3

REPORT INFORMATION
  Report Type: 
  Country: None (occurrence: None)
  Receive Date: 20060901
  Receipt Date: 20060727
  Transmission Date: 20061208
  Serious: Yes (Other)
  Sender: FDA-Public Use
  Company Number: PHEH2006US09680

PATIENT
  Age: 59 Year
  Sex: Female
  Weight: 48.526 kg

DRUGS (6)
  1. SANDOSTATIN LAR [Suspect]
     Indication: CARCINOID SYNDROME
     Dosage: 30MG IN EACH BUTTOCK Q3WEEKS
     Route: 030
     Dates: start: 20050501
  2. URSODIOL [Concomitant]
     Indication: PROPHYLAXIS
  3. MULTIVITAMIN [Concomitant]
  4. NAPROXEN [Concomitant]
     Indication: ANALGESIC EFFECT
     Dosage: 500 MG, BID
     Route: 048
  5. HYDROMORPHONE HCL [Concomitant]
     Indication: ANALGESIC EFFECT
     Dosage: 2MG Q4HOURS PRN
     Route: 048
  6. ZANTAC [Concomitant]
     Dosage: 150 MG PO BID PRN
     Route: 048

REACTIONS (11)
  - DRUG INEFFECTIVE [None]
  - HAEMANGIOMA [None]
  - HAEMANGIOMA REMOVAL [None]
  - INJECTION SITE NODULE [None]
  - INJECTION SITE PAIN [None]
  - INJECTION SITE REACTION [None]
  - NEURALGIA [None]
  - PAIN [None]
  - PANCREATIC INSUFFICIENCY [None]
  - SLEEP DISORDER [None]
  - ULTRASOUND SCAN ABNORMAL [None]
